FAERS Safety Report 11282723 (Version 1)
Quarter: 2015Q3

REPORT INFORMATION
  Report Type: Spontaneous
  Country: US (occurrence: None)
  Receive Date: 20150717
  Receipt Date: 20150717
  Transmission Date: 20151125
  Serious: Yes (Death, Hospitalization)
  Sender: FDA-Public Use
  Company Number: None

PATIENT
  Age: 70 Year
  Sex: Female
  Weight: 69.1 kg

DRUGS (1)
  1. REGORAFENIB [Suspect]
     Active Substance: REGORAFENIB
     Indication: COLON CANCER METASTATIC
     Route: 048
     Dates: start: 20150702, end: 20150709

REACTIONS (5)
  - Metastases to lung [None]
  - Metastases to liver [None]
  - Abdominal pain upper [None]
  - Abdominal tenderness [None]
  - Malignant neoplasm progression [None]

NARRATIVE: CASE EVENT DATE: 20150709
